FAERS Safety Report 4814832-9 (Version None)
Quarter: 2005Q4

REPORT INFORMATION
  Report Type: 
  Country: None (occurrence: None)
  Receive Date: 20051028
  Receipt Date: 20050915
  Transmission Date: 20060501
  Serious: Yes (Other)
  Sender: FDA-Public Use
  Company Number: FRWYE985916SEP05

PATIENT
  Sex: Male

DRUGS (6)
  1. ENBREL [Suspect]
     Indication: PSORIATIC ARTHROPATHY
     Route: 058
     Dates: start: 20050301, end: 20050919
  2. NOVATREX [Concomitant]
     Dosage: 15 MG WEEKLY
     Route: 048
     Dates: start: 20041101
  3. KETOPROFEN [Concomitant]
     Dosage: UNKNOWN
     Route: 048
  4. GLUCOPHAGE [Concomitant]
     Indication: DIABETES MELLITUS NON-INSULIN-DEPENDENT
     Dosage: UNKNOWN
  5. CATAPRESAN [Concomitant]
     Indication: HYPERTENSION
     Dosage: UNKNOWN
  6. GLIMEPIRIDE [Concomitant]

REACTIONS (6)
  - DYSAESTHESIA [None]
  - INTERVERTEBRAL DISC DISORDER [None]
  - LUMBAR SPINAL STENOSIS [None]
  - MONONEUROPATHY MULTIPLEX [None]
  - PARAESTHESIA [None]
  - POLYNEUROPATHY [None]
